FAERS Safety Report 4966862-4 (Version None)
Quarter: 2006Q2

REPORT INFORMATION
  Report Type: 
  Country: None (occurrence: None)
  Receive Date: 20060407
  Receipt Date: 20050816
  Transmission Date: 20061013
  Serious: Yes (Hospitalization, Disabling)
  Sender: FDA-Public Use
  Company Number: US-MERCK-0508USA03041

PATIENT
  Age: 48 Year
  Sex: Female
  Weight: 102 kg

DRUGS (2)
  1. VIOXX [Suspect]
     Route: 048
     Dates: start: 20021201
  2. VIOXX [Suspect]
     Route: 048
     Dates: start: 20000201, end: 20021201

REACTIONS (23)
  - AFFECTIVE DISORDER [None]
  - ANXIETY DISORDER [None]
  - BRAIN STEM INFARCTION [None]
  - CARDIAC DISORDER [None]
  - CARDIOVASCULAR DISORDER [None]
  - CEREBROVASCULAR ACCIDENT [None]
  - CEREBROVASCULAR DISORDER [None]
  - CHEST DISCOMFORT [None]
  - CHEST PAIN [None]
  - DEPRESSION [None]
  - DRUG HYPERSENSITIVITY [None]
  - FACET JOINT SYNDROME [None]
  - GASTROOESOPHAGEAL REFLUX DISEASE [None]
  - HYPERLIPIDAEMIA [None]
  - HYPERTENSION [None]
  - HYPERTENSIVE HEART DISEASE [None]
  - INTERVERTEBRAL DISC PROTRUSION [None]
  - MUCOSAL INFLAMMATION [None]
  - MULTI-ORGAN DISORDER [None]
  - TRANSIENT ISCHAEMIC ATTACK [None]
  - UPPER RESPIRATORY TRACT INFECTION [None]
  - VERTIGO POSITIONAL [None]
  - VIRAL INFECTION [None]
